FAERS Safety Report 4884643-7 (Version None)
Quarter: 2006Q1

REPORT INFORMATION
  Report Type: 
  Country: None (occurrence: None)
  Receive Date: 20060117
  Receipt Date: 20060105
  Transmission Date: 20060701
  Serious: Yes (Other)
  Sender: FDA-Public Use
  Company Number: 2006PV006606

PATIENT
  Age: 55 Year
  Sex: Female

DRUGS (8)
  1. BYETTA [Suspect]
     Indication: DIABETES MELLITUS NON-INSULIN-DEPENDENT
     Dosage: 10 + 5 MCG; BID; SC
     Route: 058
     Dates: start: 20050822, end: 20050801
  2. BYETTA [Suspect]
     Indication: DIABETES MELLITUS NON-INSULIN-DEPENDENT
     Dosage: 10 + 5 MCG; BID; SC
     Route: 058
     Dates: start: 20050801, end: 20050918
  3. KETEK [Concomitant]
  4. ADVAIR DISKUS 100/50 [Concomitant]
  5. ALUPENT INHALER [Concomitant]
  6. PHENERGAN ^WYETH-AYERST^ [Concomitant]
  7. METFORMIN HCL [Concomitant]
  8. AVANDIA [Concomitant]

REACTIONS (13)
  - ABDOMINAL PAIN [None]
  - BRAIN MASS [None]
  - CALCINOSIS [None]
  - DIARRHOEA [None]
  - FALL [None]
  - LOSS OF CONSCIOUSNESS [None]
  - NAUSEA [None]
  - RASH ERYTHEMATOUS [None]
  - RASH PAPULAR [None]
  - SINUS DISORDER [None]
  - SYNCOPE [None]
  - VERTIGO [None]
  - VOMITING [None]
